FAERS Safety Report 7983522-6 (Version None)
Quarter: 2011Q4

REPORT INFORMATION
  Report Type: 
  Country: None (occurrence: None)
  Receive Date: 20111215
  Receipt Date: 20111205
  Transmission Date: 20120403
  Serious: Yes (Other)
  Sender: FDA-Public Use
  Company Number: AU-ROCHE-710709

PATIENT
  Sex: Female
  Weight: 54.1 kg

DRUGS (7)
  1. ALLER-EZE [Concomitant]
     Dosage: FREQUENCY: PM
  2. VEMURAFENIB [Suspect]
     Indication: METASTATIC MALIGNANT MELANOMA
     Route: 048
  3. VEMURAFENIB [Suspect]
     Route: 048
  4. PARACETAMOL [Concomitant]
     Dosage: FREQUENCY: PM
  5. MYCOSTATIN [Concomitant]
     Dates: start: 20100613, end: 20100618
  6. VEMURAFENIB [Suspect]
     Dosage: TEMPORARILY INTERRUPTED
     Route: 048
     Dates: start: 20100527, end: 20100618
  7. CEPHALEXIN [Concomitant]
     Dates: start: 20100618, end: 20100624

REACTIONS (1)
  - NEUTROPENIA [None]
